FAERS Safety Report 5137235-9 (Version None)
Quarter: 2006Q4

REPORT INFORMATION
  Report Type: 
  Country: None (occurrence: None)
  Receive Date: 20061030
  Receipt Date: 20050922
  Transmission Date: 20070319
  Serious: No
  Sender: FDA-Public Use
  Company Number: US-GLAXOSMITHKLINE-A0575448A

PATIENT
  Age: 94 Year
  Sex: Female

DRUGS (13)
  1. ADVAIR HFA [Suspect]
     Indication: ASTHMA
     Dosage: 1PUFF TWICE PER DAY
     Route: 055
  2. ASPIRIN [Concomitant]
  3. POTASSIUM ACETATE [Concomitant]
  4. CENTRUM SILVER [Concomitant]
  5. CALTRATE [Concomitant]
  6. LANOXIN [Concomitant]
  7. LASIX [Concomitant]
  8. NORVASC [Concomitant]
  9. EVISTA [Concomitant]
  10. ALTACE [Concomitant]
  11. SINGULAIR [Concomitant]
  12. NITRO-DUR [Concomitant]
  13. ALBUTEROL [Concomitant]

REACTIONS (2)
  - PHARMACEUTICAL PRODUCT COMPLAINT [None]
  - RESPIRATORY DISORDER [None]
